FAERS Safety Report 8369041-6 (Version None)
Quarter: 2012Q2

REPORT INFORMATION
  Report Type: 
  Country: None (occurrence: None)
  Receive Date: 20120518
  Receipt Date: 20120511
  Transmission Date: 20120825
  Serious: Yes (Hospitalization)
  Sender: FDA-Public Use
  Company Number: VE-ROCHE-1069785

PATIENT
  Sex: Female

DRUGS (2)
  1. TEOFILINA [Concomitant]
  2. XOLAIR [Suspect]
     Indication: ASTHMA
     Route: 058
     Dates: start: 20110822

REACTIONS (2)
  - ASTHMATIC CRISIS [None]
  - NO THERAPEUTIC RESPONSE [None]
